FAERS Safety Report 10905402 (Version 1)
Quarter: 2015Q1

REPORT INFORMATION
  Report Type: Spontaneous
  Country: GB (occurrence: GB)
  Receive Date: 20150311
  Receipt Date: 20150311
  Transmission Date: 20150721
  Serious: Yes (Other)
  Sender: FDA-Public Use
  Company Number: GB-TEVA-546200ISR

PATIENT
  Sex: Male

DRUGS (9)
  1. PREDNISOLONE. [Suspect]
     Active Substance: PREDNISOLONE
     Indication: ULCERATIVE KERATITIS
     Dosage: 60 MILLIGRAM DAILY; 60 MG DAILY TAPERED AFTER AMNIOTIC MEMBRANE GRAFT
     Route: 048
  2. PREDNISOLONE. [Suspect]
     Active Substance: PREDNISOLONE
     Indication: ULCERATIVE KERATITIS
     Dosage: 15 MILLIGRAM DAILY; AGAIN REDUCED TO 15 MG/ DAILY
     Route: 048
  3. CICLOSPORIN [Suspect]
     Active Substance: CYCLOSPORINE
     Indication: KERATITIS
     Dosage: 150 MILLIGRAM DAILY;
     Route: 048
  4. PREDNISOLONE. [Suspect]
     Active Substance: PREDNISOLONE
     Indication: ULCERATIVE KERATITIS
     Dosage: 75 MILLIGRAM DAILY; INCREASED TO 75 MG / DAILY IN JAN 2012
     Route: 048
     Dates: start: 201201
  5. PREDNISOLONE. [Suspect]
     Active Substance: PREDNISOLONE
     Indication: ULCERATIVE KERATITIS
     Dosage: 75 MILLIGRAM DAILY; THEN INCREASED TO 75 MG PER DAY WITH GRADUAL TAPER
     Route: 048
  6. MYCOPHENOLATE [Suspect]
     Active Substance: MYCOPHENOLIC ACID
     Indication: KERATITIS
     Dosage: 2 GRAM DAILY;
     Route: 048
     Dates: start: 201201
  7. PREDNISOLONE. [Suspect]
     Active Substance: PREDNISOLONE
     Indication: ULCERATIVE KERATITIS
     Dosage: IN JAN 2012 WHILE HE WAS ON 10 MG
     Route: 048
  8. MYCOPHENOLATE [Suspect]
     Active Substance: MYCOPHENOLIC ACID
     Indication: KERATITIS
     Dosage: 2.5 GRAM DAILY;
     Route: 048
  9. INFLIXIMAB [Concomitant]
     Active Substance: INFLIXIMAB
     Indication: KERATITIS
     Route: 042

REACTIONS (1)
  - Anal abscess [Unknown]
